FAERS Safety Report 6158668-8 (Version None)
Quarter: 2009Q2

REPORT INFORMATION
  Report Type: 
  Country: None (occurrence: None)
  Receive Date: 20090415
  Receipt Date: 20090331
  Transmission Date: 20091009
  Serious: Yes (Hospitalization)
  Sender: FDA-Public Use
  Company Number: 2009S1005597

PATIENT
  Age: 40 Year
  Sex: Male

DRUGS (13)
  1. METHYLPREDNISOLONE 4MG TAB [Suspect]
     Indication: HYPOTENSION
     Dosage: INTRAVENOUS
     Route: 042
  2. TRIAMCINOLONE [Suspect]
     Indication: SEASONAL ALLERGY
     Dosage: NASAL
     Route: 045
  3. METOPROLOL TARTRATE [Suspect]
     Indication: HYPERTENSION
     Dosage: 2.5 MG; INTRAVENOUS
     Route: 042
  4. CODEINE [Suspect]
  5. EPHEDRINE [Concomitant]
  6. QUINAPRIL [Concomitant]
  7. MONTELUKAST [Concomitant]
  8. CETIRIZINE [Concomitant]
  9. ACETAMINOPHEN W/ASPIRIN/CAFFEINE [Concomitant]
  10. HEPARIN [Concomitant]
  11. ADENOSINE [Concomitant]
  12. CEFTRIAXONE [Concomitant]
  13. VANCOMYCIN HCL [Concomitant]

REACTIONS (15)
  - BLOOD CREATININE INCREASED [None]
  - BLOOD URINE PRESENT [None]
  - CONDITION AGGRAVATED [None]
  - DYSPNOEA [None]
  - EJECTION FRACTION DECREASED [None]
  - ELECTROCARDIOGRAM ST SEGMENT ELEVATION [None]
  - ELECTROCARDIOGRAM T WAVE AMPLITUDE DECREASED [None]
  - HAEMOPTYSIS [None]
  - HYPOTENSION [None]
  - PHAEOCHROMOCYTOMA [None]
  - POLYCYTHAEMIA [None]
  - PROTEINURIA [None]
  - SEPSIS [None]
  - SUPRAVENTRICULAR TACHYCARDIA [None]
  - TROPONIN INCREASED [None]
